FAERS Safety Report 4899825-8 (Version None)
Quarter: 2006Q1

REPORT INFORMATION
  Report Type: 
  Country: None (occurrence: None)
  Receive Date: 20060113
  Receipt Date: 20051004
  Transmission Date: 20060701
  Serious: No
  Sender: FDA-Public Use
  Company Number: 2005SP002852

PATIENT
  Age: 72 Year
  Sex: Female

DRUGS (5)
  1. LUNESTA [Suspect]
     Indication: INSOMNIA
     Dosage: 2 MG, HS, ORAL
     Route: 048
     Dates: start: 20050701, end: 20050101
  2. DIOVAN HCT [Concomitant]
  3. CARDIZEM CD [Concomitant]
  4. FISH OIL [Concomitant]
  5. AMBIEN [Concomitant]

REACTIONS (3)
  - DRUG INEFFECTIVE [None]
  - DYSGEUSIA [None]
  - MIDDLE INSOMNIA [None]
